FAERS Safety Report 8362505-0 (Version None)
Quarter: 2012Q2

REPORT INFORMATION
  Report Type: 
  Country: None (occurrence: None)
  Receive Date: 20120514
  Receipt Date: 20120502
  Transmission Date: 20120825
  Serious: Yes (Hospitalization)
  Sender: FDA-Public Use
  Company Number: DKLU1079404

PATIENT
  Age: 11 Month
  Sex: Male

DRUGS (2)
  1. SABRIL [Suspect]
     Indication: INFANTILE SPASMS
  2. ACTH [Concomitant]

REACTIONS (1)
  - ENCEPHALITIS [None]
